FAERS Safety Report 5479582-7 (Version None)
Quarter: 2007Q4

REPORT INFORMATION
  Report Type: 
  Country: None (occurrence: None)
  Receive Date: 20071008
  Receipt Date: 20071003
  Transmission Date: 20080405
  Serious: Yes (Death, Hospitalization)
  Sender: FDA-Public Use
  Company Number: FR-BRISTOL-MYERS SQUIBB COMPANY-13928171

PATIENT
  Age: 57 Year
  Sex: Male
  Weight: 41 kg

DRUGS (4)
  1. CISPLATIN [Suspect]
  2. NEULASTA [Suspect]
     Indication: CHEMOTHERAPY
     Route: 058
     Dates: start: 20060124
  3. FLUOROURACIL [Suspect]
     Dates: start: 20060124, end: 20060322
  4. EPIRUBICIN [Suspect]

REACTIONS (4)
  - FEBRILE BONE MARROW APLASIA [None]
  - NEUTROPENIA [None]
  - PRE-EXISTING DISEASE [None]
  - THROMBOCYTOPENIA [None]
